FAERS Safety Report 18820532 (Version 1)
Quarter: 2021Q1

REPORT INFORMATION
  Report Type: Spontaneous
  Country: US (occurrence: US)
  Receive Date: 20210202
  Receipt Date: 20210202
  Transmission Date: 20210419
  Serious: Yes (Other)
  Sender: FDA-Public Use
  Company Number: US-MYLANLABS-2021M1005536

PATIENT
  Sex: Female
  Weight: 109 kg

DRUGS (2)
  1. COLLAGEN [Concomitant]
     Active Substance: COLLAGEN
     Dosage: UNK
  2. TAMOXIFEN CITRATE TABLETS, USP [Suspect]
     Active Substance: TAMOXIFEN
     Indication: NEOPLASM MALIGNANT
     Dosage: UNK UNK, QD
     Route: 048
     Dates: end: 20210122

REACTIONS (3)
  - Neuropathy peripheral [Not Recovered/Not Resolved]
  - Rash [Not Recovered/Not Resolved]
  - Paraesthesia [Not Recovered/Not Resolved]
